FAERS Safety Report 9323423 (Version 2)
Quarter: 2013Q3

REPORT INFORMATION
  Report Type: Spontaneous
  Country: US (occurrence: US)
  Receive Date: 20130603
  Receipt Date: 20130808
  Transmission Date: 20140515
  Serious: No
  Sender: FDA-Public Use
  Company Number: US-PFIZER INC-2013166486

PATIENT
  Age: 77 Year
  Sex: Female
  Weight: 136 kg

DRUGS (3)
  1. LYRICA [Suspect]
     Indication: NEUROPATHY PERIPHERAL
     Dosage: 75 MG, 2X/DAY
     Route: 048
  2. LYRICA [Suspect]
     Dosage: 75 MG IN THE MORNING AND 150 MG (2 X 75 MG) AT NIGHT
     Route: 048
  3. NOVOLIN 70/30 [Suspect]
     Indication: DIABETES MELLITUS
     Dosage: 25 UNITS, DAILY IN MORNING

REACTIONS (3)
  - Drug ineffective [Unknown]
  - Insomnia [Unknown]
  - Blood glucose increased [Unknown]
